FAERS Safety Report 6133797-3 (Version None)
Quarter: 2009Q1

REPORT INFORMATION
  Report Type: 
  Country: None (occurrence: None)
  Receive Date: 20090326
  Receipt Date: 20070531
  Transmission Date: 20090719
  Serious: Yes (Death, Life-Threatening, Hospitalization, Disabling, Other)
  Sender: FDA-Public Use
  Company Number: FR-PFIZER INC-2009153967

PATIENT

DRUGS (12)
  1. FARMORUBICIN [Suspect]
     Indication: GASTRIC CANCER
     Dosage: 50 MG/M2
     Route: 042
     Dates: start: 20060314
  2. CISPLATYL [Suspect]
     Indication: GASTRIC CANCER
     Dosage: 60 MG/M2
     Route: 042
     Dates: start: 20060314
  3. XELODA [Suspect]
     Indication: GASTRIC CANCER
     Dosage: 4000 MG,  EVERY DAY
     Route: 048
     Dates: start: 20060315, end: 20060319
  4. DI-ANTALVIC [Concomitant]
     Indication: HYPERSENSITIVITY
  5. PROPOFAN [Concomitant]
     Indication: HYPERSENSITIVITY
  6. PREDNISOLONE [Concomitant]
     Indication: HYPERSENSITIVITY
  7. SKENAN [Concomitant]
     Indication: HYPERSENSITIVITY
     Dosage: 30 MG, 2X/DAY
  8. ACTISKENAN [Suspect]
     Indication: HYPERSENSITIVITY
     Dosage: AS NEEDED
  9. CARDENSIEL [Concomitant]
     Dosage: 1 TABLET/DAY
  10. TRIATEC [Concomitant]
     Dosage: 1 TABLET
  11. LASIX [Concomitant]
     Dosage: 40 MG, 1 TABLET
  12. DIGOXIN [Concomitant]
     Indication: PRESYNCOPE
     Dosage: 1 TABLET

REACTIONS (1)
  - RENAL FAILURE ACUTE [None]
